FAERS Safety Report 6156721-6 (Version None)
Quarter: 2009Q2

REPORT INFORMATION
  Report Type: 
  Country: None (occurrence: None)
  Receive Date: 20090413
  Receipt Date: 20090413
  Transmission Date: 20091009
  Serious: Yes (Hospitalization)
  Sender: FDA-Public Use
  Company Number: None

PATIENT
  Sex: Male
  Weight: 81.1 kg

DRUGS (14)
  1. CYCLOPHOSPHAMIDE [Suspect]
     Dosage: 1485 MG
  2. DOXIL [Suspect]
     Dosage: 79 MG
  3. NEULASTA [Suspect]
     Dosage: 6 MG
  4. PREDNISONE [Suspect]
     Dosage: 400 MG
  5. RITUXIMAB (MOAB C2B8 ANTI CD20, CHIMERIC) [Suspect]
     Dosage: 743 MG
  6. VINCRISTINE SULFATE [Suspect]
     Dosage: 2 MG
  7. CHOLESTOFF [Concomitant]
  8. CIMETIDINE HCL [Concomitant]
  9. CITRACAL [Concomitant]
  10. FISH OIL [Concomitant]
  11. GLUCOSAMINE [Concomitant]
  12. HYDROCHLOROTHIAZIDE [Concomitant]
  13. NEXIUM [Concomitant]
  14. VALSARTAN [Concomitant]

REACTIONS (1)
  - FEBRILE NEUTROPENIA [None]
